FAERS Safety Report 8085579-3 (Version None)
Quarter: 2012Q1

REPORT INFORMATION
  Report Type: 
  Country: None (occurrence: None)
  Receive Date: 20120128
  Receipt Date: 20110401
  Transmission Date: 20120608
  Serious: No
  Sender: FDA-Public Use
  Company Number: US-ABBOTT-11P-163-0715766-00

PATIENT
  Age: 30 Year
  Sex: Male

DRUGS (4)
  1. ZOLOFT [Concomitant]
     Indication: STRESS
  2. HUMIRA [Suspect]
     Indication: CROHN'S DISEASE
     Dosage: DAY 1
     Route: 058
     Dates: start: 20110314, end: 20110314
  3. HUMIRA [Suspect]
     Dosage: DAY 15
  4. XANAX [Concomitant]
     Indication: STRESS

REACTIONS (8)
  - PARAESTHESIA [None]
  - HYPOAESTHESIA [None]
  - INFLUENZA [None]
  - HEADACHE [None]
  - RASH PRURITIC [None]
  - CHILLS [None]
  - SKIN WARM [None]
  - RASH PAPULAR [None]
